FAERS Safety Report 8048494-7 (Version None)
Quarter: 2012Q1

REPORT INFORMATION
  Report Type: 
  Country: None (occurrence: None)
  Receive Date: 20120117
  Receipt Date: 20120113
  Transmission Date: 20120608
  Serious: No
  Sender: FDA-Public Use
  Company Number: US-PFIZER INC-2012010946

PATIENT
  Sex: Female

DRUGS (2)
  1. NORVASC [Suspect]
     Indication: BLOOD PRESSURE ABNORMAL
     Dosage: UNK
  2. AMLODIPINE BESYLATE [Suspect]
     Indication: BLOOD PRESSURE ABNORMAL
     Dosage: 2.5 MG, UNK
     Dates: start: 20120101

REACTIONS (5)
  - ASTHENIA [None]
  - HEADACHE [None]
  - DIZZINESS [None]
  - GINGIVAL PAIN [None]
  - INSOMNIA [None]
